FAERS Safety Report 7534525-7 (Version None)
Quarter: 2011Q2

REPORT INFORMATION
  Report Type: 
  Country: None (occurrence: None)
  Receive Date: 20110609
  Receipt Date: 20090525
  Transmission Date: 20111010
  Serious: Yes (Hospitalization, Other)
  Sender: FDA-Public Use
  Company Number: PHHY2009JP11109

PATIENT
  Sex: Male
  Weight: 69 kg

DRUGS (12)
  1. LOSARTAN POTASSIUM [Concomitant]
     Indication: HYPERTENSION
     Dosage: 50 MG, UNK
     Route: 048
     Dates: start: 20041013, end: 20080121
  2. LANSOPRAZOLE [Concomitant]
     Dosage: 15 MG, UNK
     Route: 048
     Dates: start: 20080715
  3. FOSAMAX [Concomitant]
     Dosage: 35 MG, UNK
     Route: 048
     Dates: start: 20040817
  4. FOLIC ACID [Concomitant]
     Dosage: 5 MG, UNK
     Route: 048
     Dates: start: 20041013
  5. METHOTREXATE [Concomitant]
     Dosage: 2.5 MG, UNK
     Route: 048
     Dates: start: 20060704
  6. VALSARTAN [Suspect]
     Indication: HYPERTENSION
     Dosage: 120 (80+40 MG)
     Route: 048
     Dates: start: 20080122, end: 20081126
  7. SULFASALAZINE [Concomitant]
     Dosage: 1000 MG, UNK
     Route: 048
     Dates: start: 20040817
  8. RHEUMATREX [Concomitant]
     Dosage: 2 MG, UNK
     Route: 048
     Dates: start: 20040817
  9. PREDNISOLONE [Concomitant]
     Dosage: 1 MG, UNK
     Route: 048
     Dates: start: 20040817
  10. LANSOPRAZOLE [Concomitant]
     Dosage: 150 MG, UNK
     Route: 048
     Dates: start: 20080122, end: 20080714
  11. PLATIBIT [Concomitant]
     Dosage: 0.5 UG, UNK
     Route: 048
     Dates: start: 20080715
  12. ALFAROL [Concomitant]
     Dosage: 0.5 UG, UNK
     Route: 048
     Dates: start: 20040817, end: 20080714

REACTIONS (14)
  - JOINT SWELLING [None]
  - MALAISE [None]
  - GAIT DISTURBANCE [None]
  - PRODUCTIVE COUGH [None]
  - PYREXIA [None]
  - RED BLOOD CELL SEDIMENTATION RATE INCREASED [None]
  - PNEUMONIA [None]
  - WHITE BLOOD CELL COUNT INCREASED [None]
  - PROTEIN URINE PRESENT [None]
  - INCREASED UPPER AIRWAY SECRETION [None]
  - BURNING SENSATION [None]
  - BLOOD URINE PRESENT [None]
  - DISCOMFORT [None]
  - C-REACTIVE PROTEIN INCREASED [None]
